FAERS Safety Report 16973484 (Version 1)
Quarter: 2019Q4

REPORT INFORMATION
  Report Type: Spontaneous
  Country: US (occurrence: US)
  Receive Date: 20191030
  Receipt Date: 20191030
  Transmission Date: 20200122
  Serious: Yes (Death)
  Sender: FDA-Public Use
  Company Number: US-TEVA-2019-US-1130912

PATIENT
  Sex: Female

DRUGS (11)
  1. LEXAPRO [Concomitant]
     Active Substance: ESCITALOPRAM OXALATE
  2. AUSTEDO [Suspect]
     Active Substance: DEUTETRABENAZINE
     Dosage: 24 MILLIGRAM DAILY;
     Route: 048
     Dates: start: 201802
  3. VALIUM [Concomitant]
     Active Substance: DIAZEPAM
  4. GABAPENTIN. [Concomitant]
     Active Substance: GABAPENTIN
  5. MECLIZINE [Concomitant]
     Active Substance: MECLIZINE HYDROCHLORIDE
  6. NORCO [Concomitant]
     Active Substance: ACETAMINOPHEN\HYDROCODONE BITARTRATE
  7. AUSTEDO [Suspect]
     Active Substance: DEUTETRABENAZINE
     Indication: DYSKINESIA
     Dosage: STARTED
     Route: 048
     Dates: start: 201802
  8. METOPROLOL. [Concomitant]
     Active Substance: METOPROLOL
  9. TOPAMAX [Concomitant]
     Active Substance: TOPIRAMATE
  10. FUROSEMIDE. [Concomitant]
     Active Substance: FUROSEMIDE
  11. TESSALON [Concomitant]
     Active Substance: BENZONATATE

REACTIONS (1)
  - Death [Fatal]
